FAERS Safety Report 6848321-7 (Version None)
Quarter: 2010Q3

REPORT INFORMATION
  Report Type: 
  Country: None (occurrence: None)
  Receive Date: 20100716
  Receipt Date: 20100707
  Transmission Date: 20110219
  Serious: Yes (Other)
  Sender: FDA-Public Use
  Company Number: JP-GENENTECH-303984

PATIENT
  Age: 4 Year
  Sex: Male

DRUGS (1)
  1. RITUXIMAB [Suspect]
     Indication: NEPHROTIC SYNDROME

REACTIONS (2)
  - AGRANULOCYTOSIS [None]
  - TONSILLITIS [None]
